FAERS Safety Report 20736531 (Version 1)
Quarter: 2022Q2

REPORT INFORMATION
  Report Type: Spontaneous
  Country: US (occurrence: US)
  Receive Date: 20220421
  Receipt Date: 20220421
  Transmission Date: 20220721
  Serious: No
  Sender: FDA-Public Use
  Company Number: US-PFIZER INC-202200124736

PATIENT
  Age: 78 Year
  Sex: Female

DRUGS (5)
  1. IBRANCE [Suspect]
     Active Substance: PALBOCICLIB
     Dosage: 75 MG
     Dates: start: 20220110
  2. IBRANCE [Suspect]
     Active Substance: PALBOCICLIB
     Dosage: 75 MG
     Dates: start: 20220119
  3. IBRANCE [Suspect]
     Active Substance: PALBOCICLIB
     Dosage: 75 MG
     Dates: start: 20220120
  4. IBRANCE [Suspect]
     Active Substance: PALBOCICLIB
     Dosage: UNK
     Dates: start: 20220216
  5. IBRANCE [Suspect]
     Active Substance: PALBOCICLIB
     Dosage: UNK
     Dates: start: 20220130

REACTIONS (14)
  - Poor quality product administered [Unknown]
  - Product packaging issue [Unknown]
  - Nausea [Unknown]
  - Increased upper airway secretion [Unknown]
  - Dysphonia [Unknown]
  - Dysphagia [Unknown]
  - Aphonia [Unknown]
  - Dyspnoea [Unknown]
  - Vocal cord paralysis [Unknown]
  - Abdominal discomfort [Unknown]
  - Secretion discharge [Unknown]
  - Weight decreased [Unknown]
  - Pain [Unknown]
  - Abdominal pain upper [Unknown]

NARRATIVE: CASE EVENT DATE: 20220202
